FAERS Safety Report 16150140 (Version 2)
Quarter: 2019Q2

REPORT INFORMATION
  Report Type: Report from Study
  Country: US (occurrence: US)
  Receive Date: 20190402
  Receipt Date: 20190501
  Transmission Date: 20190711
  Serious: Yes (Hospitalization)
  Sender: FDA-Public Use
  Company Number: US-BAUSCH-BL-2019-008575

PATIENT
  Sex: Female

DRUGS (1)
  1. APRISO [Suspect]
     Active Substance: MESALAMINE
     Indication: COLITIS ULCERATIVE
     Dosage: 4 CAPSULES ONCE DAILY
     Route: 065

REACTIONS (5)
  - Hospitalisation [Unknown]
  - Insomnia [Unknown]
  - Stress [Unknown]
  - Ill-defined disorder [Unknown]
  - Intentional product use issue [Unknown]
